FAERS Safety Report 9190579 (Version 1)
Quarter: 2013Q1

REPORT INFORMATION
  Report Type: Spontaneous
  Country: US (occurrence: None)
  Receive Date: 20120703
  Receipt Date: 20120703
  Transmission Date: 20140127
  Serious: Yes (Disabling, Other)
  Sender: FDA-Public Use
  Company Number: PHEH2012US005069

PATIENT
  Age: 39 Year
  Sex: Female

DRUGS (9)
  1. GILENYA (FTY) CAPSULE, 0.5 MG [Suspect]
     Indication: MULTIPLE SCLEROSIS
     Route: 048
     Dates: start: 20110415, end: 20120208
  2. XANAX (ALPRAZOLAM) [Concomitant]
  3. EFFEXOR-XR (VENLAFAXINE HYDROCHLORIDE) [Concomitant]
  4. NEUROTRONIN (GABAPENTIN) [Concomitant]
  5. REQUIP (ROPINIROLE HYDROCHLORIDE) [Concomitant]
  6. BUSPAR (BUSPIRONE HYDROCHLORIDE [Concomitant]
  7. ANTIVERT (MECLOZINE HYDROCHLORIDE) [Concomitant]
  8. AMBIEN (ZOLPIDEM TARTRATE) [Concomitant]
  9. DITROPAN (OXYBUTYNIN HYDROCHLORIDE) [Concomitant]

REACTIONS (2)
  - Macular oedema [None]
  - Vision blurred [None]
